FAERS Safety Report 24590718 (Version 3)
Quarter: 2025Q1

REPORT INFORMATION
  Report Type: Report from Study
  Country: CO (occurrence: CO)
  Receive Date: 20241107
  Receipt Date: 20250306
  Transmission Date: 20250408
  Serious: Yes (Hospitalization)
  Sender: ELI LILLY AND COMPANY
  Company Number: CO-ELI_LILLY_AND_COMPANY-CO202411002764

PATIENT
  Age: 32 Year
  Sex: Female

DRUGS (2)
  1. VERZENIO [Suspect]
     Active Substance: ABEMACICLIB
     Indication: Breast cancer
     Dosage: 150 MG, BID (EVERY 12 HOURS)
     Route: 048
     Dates: start: 20240710, end: 20240808
  2. VERZENIO [Suspect]
     Active Substance: ABEMACICLIB
     Route: 048
     Dates: end: 20250212

REACTIONS (9)
  - Myocardial infarction [Recovered/Resolved]
  - Malignant neoplasm progression [Not Recovered/Not Resolved]
  - Gait disturbance [Not Recovered/Not Resolved]
  - Back pain [Not Recovered/Not Resolved]
  - Depressed mood [Not Recovered/Not Resolved]
  - Pain [Not Recovered/Not Resolved]
  - Amnesia [Unknown]
  - Weight decreased [Unknown]
  - Vomiting [Unknown]

NARRATIVE: CASE EVENT DATE: 20241016
